FAERS Safety Report 20912675 (Version 1)
Quarter: 2022Q2

REPORT INFORMATION
  Report Type: Report from Study
  Country: CN (occurrence: None)
  Receive Date: 20220603
  Receipt Date: 20220603
  Transmission Date: 20220720
  Serious: Yes (Other)
  Sender: FDA-Public Use
  Company Number: 2022A206447

PATIENT

DRUGS (6)
  1. OSIMERTINIB [Suspect]
     Active Substance: OSIMERTINIB
     Indication: Non-small cell lung cancer
     Dosage: 80 MG, ONCE A DAY
     Route: 048
  2. PEMETREXED [Suspect]
     Active Substance: PEMETREXED
     Indication: Non-small cell lung cancer
     Dosage: 500 MG/M2 ONCE A DAY
     Route: 041
  3. BEVACIZUMAB [Suspect]
     Active Substance: BEVACIZUMAB
     Indication: Non-small cell lung cancer
     Dosage: 7.5 MG/KG, ONCE A DAY
     Route: 041
  4. FOLIC ACID [Suspect]
     Active Substance: FOLIC ACID
     Dosage: 400 G/TIME, ONCE A DAY, WAS REQUIRED FROM 7 DAYS BEFORE CHEMOTHERAPY TO 21 DAYS AFTER THE END OF ...
     Route: 048
  5. VITAMIN B12 [Suspect]
     Active Substance: CYANOCOBALAMIN
     Dosage: 1,000 G/TIME, ONCE A DAY, WAS REQUIRED 7 DAYS BEFORE CHEMOTHERAPY, FOLLOWED BY INJECTION ONCE EVE...
     Route: 030
  6. DEXAMETHASONE [Suspect]
     Active Substance: DEXAMETHASONE
     Dosage: 1 DAY BEFORE CHEMOTHERAPY, ON THE DAY OF CHEMOTHERAPY, AND ON THE SECOND DAY AFTER CHEMOTHERAPY R...
     Route: 048

REACTIONS (1)
  - Myelosuppression [Unknown]
